FAERS Safety Report 5632870-3 (Version None)
Quarter: 2008Q1

REPORT INFORMATION
  Report Type: 
  Country: None (occurrence: None)
  Receive Date: 20080221
  Receipt Date: 20070410
  Transmission Date: 20080703
  Serious: Yes (Other)
  Sender: FDA-Public Use
  Company Number: US-ASTRAZENECA-2007UW02127

PATIENT
  Age: 514 Month
  Sex: Female
  Weight: 88.2 kg

DRUGS (8)
  1. SEROQUEL [Suspect]
     Indication: FLIGHT OF IDEAS
     Route: 048
     Dates: start: 20021201, end: 20030101
  2. SEROQUEL [Suspect]
     Indication: BIPOLAR DISORDER
     Route: 048
     Dates: start: 20021201, end: 20030101
  3. SEROQUEL [Suspect]
     Route: 048
     Dates: start: 20071101
  4. SEROQUEL [Suspect]
     Route: 048
     Dates: start: 20071101
  5. DEPAKOTE [Concomitant]
     Route: 048
     Dates: start: 20030401
  6. DEPAKOTE [Concomitant]
     Route: 048
     Dates: start: 20071101
  7. REDUX [Concomitant]
     Indication: WEIGHT CONTROL
     Route: 048
     Dates: start: 19950101
  8. LEXAPRO [Concomitant]
     Route: 048
     Dates: start: 20070101

REACTIONS (8)
  - BIOPSY BREAST [None]
  - BIOPSY SKIN [None]
  - BLOOD CHOLESTEROL INCREASED [None]
  - BLOOD TRIGLYCERIDES INCREASED [None]
  - GASTRIC BYPASS [None]
  - PHARYNGITIS STREPTOCOCCAL [None]
  - TYPE 2 DIABETES MELLITUS [None]
  - VISION BLURRED [None]
